FAERS Safety Report 12390284 (Version 1)
Quarter: 2016Q2

REPORT INFORMATION
  Report Type: Spontaneous
  Country: IT (occurrence: IT)
  Receive Date: 20160520
  Receipt Date: 20160520
  Transmission Date: 20160815
  Serious: Yes (Other)
  Sender: FDA-Public Use
  Company Number: IT-PFIZER INC-2016263332

PATIENT
  Age: 38 Year
  Sex: Female
  Weight: 43 kg

DRUGS (10)
  1. PIRALDINA [Suspect]
     Active Substance: PYRAZINAMIDE
     Indication: DISSEMINATED TUBERCULOSIS
     Dosage: 1500 MG, DAILY
     Route: 048
     Dates: start: 20060327, end: 20070119
  2. KALETRA [Concomitant]
     Active Substance: LOPINAVIR\RITONAVIR
     Indication: ANTIRETROVIRAL THERAPY
     Dosage: 1 DF, UNK
     Route: 048
     Dates: start: 20060414
  3. POTASSION [Concomitant]
     Active Substance: POTASSIUM CHLORIDE
     Dosage: 2 DF, UNK
     Dates: start: 20060526
  4. MYCOBUTIN [Suspect]
     Active Substance: RIFABUTIN
     Indication: DISSEMINATED TUBERCULOSIS
     Dosage: 450 MG, WEEKLY
     Route: 048
     Dates: start: 20060414, end: 20070119
  5. RIFADIN [Suspect]
     Active Substance: RIFAMPIN
     Indication: DISSEMINATED TUBERCULOSIS
     Dosage: 600 MG, DAILY
     Route: 048
     Dates: start: 20060327, end: 20060414
  6. EMTRIVA [Concomitant]
     Active Substance: EMTRICITABINE
     Indication: ANTIRETROVIRAL THERAPY
     Dosage: 200 MG, UNK
     Route: 048
     Dates: start: 20060414
  7. FOLINA /00024201/ [Concomitant]
     Active Substance: FOLIC ACID
     Dosage: 1 DF, UNK
     Dates: start: 20060526
  8. ETAPIAM [Suspect]
     Active Substance: ETHAMBUTOL HYDROCHLORIDE
     Indication: DISSEMINATED TUBERCULOSIS
     Dosage: 1500 MG, DAILY
     Route: 048
     Dates: start: 20060327, end: 20070119
  9. INH [Suspect]
     Active Substance: ISONIAZID
     Indication: DISSEMINATED TUBERCULOSIS
     Dosage: UNK
     Dates: start: 20060327, end: 20060407
  10. GRANULOKINE [Concomitant]
     Active Substance: FILGRASTIM
     Indication: NEUTROPENIA
     Dosage: 3 DF, UNK
     Route: 058
     Dates: start: 20060525, end: 20060625

REACTIONS (1)
  - Neuropathy peripheral [Recovering/Resolving]

NARRATIVE: CASE EVENT DATE: 20060707
